FAERS Safety Report 13248053 (Version 2)
Quarter: 2017Q1

REPORT INFORMATION
  Report Type: Report from Study
  Country: None (occurrence: US)
  Receive Date: 20170217
  Receipt Date: 20170227
  Transmission Date: 20170428
  Serious: Yes (Other)
  Sender: FDA-Public Use
  Company Number: US-ABBVIE-17K-163-1873122-00

PATIENT
  Sex: Female

DRUGS (2)
  1. HUMIRA [Suspect]
     Active Substance: ADALIMUMAB
     Route: 058
     Dates: end: 201612
  2. HUMIRA [Suspect]
     Active Substance: ADALIMUMAB
     Indication: PSORIATIC ARTHROPATHY
     Route: 058
     Dates: start: 2004, end: 2013

REACTIONS (6)
  - Pain [Unknown]
  - Protein urine present [Unknown]
  - Rheumatoid arthritis [Unknown]
  - Nephropathy [Unknown]
  - Psoriatic arthropathy [Unknown]
  - Arthralgia [Unknown]
